FAERS Safety Report 21613699 (Version 3)
Quarter: 2023Q2

REPORT INFORMATION
  Report Type: Report from Study
  Country: JP (occurrence: JP)
  Receive Date: 20221118
  Receipt Date: 20230411
  Transmission Date: 20230721
  Serious: Yes (Other)
  Sender: FDA-Public Use
  Company Number: JP-MSD-2211JPN001368JAA

PATIENT
  Age: 62 Year
  Sex: Male
  Weight: 54 kg

DRUGS (3)
  1. MOLNUPIRAVIR [Suspect]
     Active Substance: MOLNUPIRAVIR
     Indication: COVID-19 treatment
     Dosage: 800 MILLIGRAM, QD
     Dates: start: 20220329, end: 20220329
  2. MOLNUPIRAVIR [Suspect]
     Active Substance: MOLNUPIRAVIR
     Dosage: 800 MILLIGRAM, BID
     Dates: start: 20220330, end: 20220402
  3. MOLNUPIRAVIR [Suspect]
     Active Substance: MOLNUPIRAVIR
     Dosage: 800 MILLIGRAM, QD
     Dates: start: 20220403, end: 20220403

REACTIONS (3)
  - Oxygen saturation decreased [Unknown]
  - Spinal cord injury [Unknown]
  - Product use issue [Unknown]

NARRATIVE: CASE EVENT DATE: 20220329
